FAERS Safety Report 16305717 (Version 1)
Quarter: 2019Q2

REPORT INFORMATION
  Report Type: Spontaneous
  Country: US (occurrence: US)
  Receive Date: 20190512
  Receipt Date: 20190512
  Transmission Date: 20190711
  Serious: Yes (Other)
  Sender: FDA-Public Use
  Company Number: None

PATIENT
  Age: 49 Year
  Sex: Male
  Weight: 89.1 kg

DRUGS (2)
  1. LYRICA [Concomitant]
     Active Substance: PREGABALIN
  2. AMLODIPINE BESYLAT E [Suspect]
     Active Substance: AMLODIPINE BESYLATE
     Indication: HYPERTENSION
     Dosage: ?          QUANTITY:1 CAPSULE(S);?
     Route: 048
     Dates: start: 20181225, end: 20190428

REACTIONS (6)
  - Scrotal pain [None]
  - Paraesthesia [None]
  - Pain [None]
  - Hypoaesthesia oral [None]
  - Testicular pain [None]
  - Pain in extremity [None]

NARRATIVE: CASE EVENT DATE: 20190114
